FAERS Safety Report 19960349 (Version 1)
Quarter: 2021Q4

REPORT INFORMATION
  Report Type: Report from Study
  Country: US (occurrence: US)
  Receive Date: 20211015
  Receipt Date: 20211015
  Transmission Date: 20220303
  Serious: Yes (Life-Threatening, Other)
  Sender: FDA-Public Use
  Company Number: 2021A632591

PATIENT
  Age: 73 Year
  Sex: Female
  Weight: 52.4 kg

DRUGS (5)
  1. TAGRISSO [Suspect]
     Active Substance: OSIMERTINIB
     Indication: Glomerular filtration rate
     Route: 048
     Dates: start: 20210313
  2. TAGRISSO [Suspect]
     Active Substance: OSIMERTINIB
     Indication: Glomerular filtration rate
     Route: 048
     Dates: start: 20210412
  3. TAGRISSO [Suspect]
     Active Substance: OSIMERTINIB
     Indication: Glomerular filtration rate
     Route: 048
     Dates: start: 20210513, end: 20210603
  4. CARBOPLATIN [Concomitant]
     Active Substance: CARBOPLATIN
  5. PEMETREXED [Concomitant]
     Active Substance: PEMETREXED

REACTIONS (9)
  - Dizziness [Recovered/Resolved]
  - Chest pain [Recovered/Resolved]
  - Palpitations [Recovered/Resolved]
  - Petechiae [Recovered/Resolved]
  - Neoplasm progression [Unknown]
  - Metastases to central nervous system [Unknown]
  - Heart rate increased [Unknown]
  - Epistaxis [Unknown]
  - Dyspnoea [Unknown]

NARRATIVE: CASE EVENT DATE: 20210323
